FAERS Safety Report 8942799 (Version 2)
Quarter: 2013Q1

REPORT INFORMATION
  Report Type: Spontaneous
  Country: US (occurrence: US)
  Receive Date: 20121204
  Receipt Date: 20130315
  Transmission Date: 20140127
  Serious: Yes (Hospitalization)
  Sender: FDA-Public Use
  Company Number: US-ELI_LILLY_AND_COMPANY-US201211008217

PATIENT
  Sex: Female

DRUGS (26)
  1. FORTEO [Suspect]
     Indication: OSTEOPOROSIS
     Dosage: UNK
     Dates: start: 20121120
  2. FORTEO [Suspect]
     Dosage: 20 UG, QD
     Route: 058
     Dates: start: 201209
  3. IMURAN [Concomitant]
     Dosage: 3 TABLETS, QD
     Route: 048
  4. FUROSEMIDE [Concomitant]
     Dosage: 80 MG, QD
     Route: 048
  5. METOLAZONE [Concomitant]
     Dosage: 2.5 MG, 2/W
     Route: 048
  6. DIAZEPAM [Concomitant]
     Dosage: 5 MG, TID
     Route: 048
  7. OXYCODONE HCL [Concomitant]
     Dosage: 90 MG, BID
     Route: 048
  8. METHENAMINE [Concomitant]
     Dosage: 1 G, BID WITH MEALS
     Route: 048
  9. PROVENTIL                          /00139501/ [Concomitant]
     Dosage: 2.5 MG, QID
  10. CYANOCOBALAMIN [Concomitant]
     Dosage: 1 ML, MONTHLY (1/M)
  11. DILTIAZEM [Concomitant]
     Dosage: 240 MG, QD
     Route: 048
  12. FISH OIL [Concomitant]
     Dosage: 2 G, BID
     Route: 048
  13. TAMSULOSIN [Concomitant]
     Dosage: 0.4 MG, QD
     Route: 048
  14. POTASSIUM CHLORIDE [Concomitant]
     Dosage: 10 MEQ, QD
     Route: 048
  15. PROMETHAZINE [Concomitant]
     Dosage: 25 MG, EVERY 6 HRS PRN
     Route: 048
  16. CLOPIDOGREL [Concomitant]
     Dosage: 75 MG, QD
     Route: 048
  17. PREDNISONE [Concomitant]
     Dosage: 10 MG, QD
     Route: 048
  18. SENNA-S                            /01035001/ [Concomitant]
     Dosage: 1 TABLET QD
     Route: 048
  19. MONTELUKAST [Concomitant]
     Dosage: 10 MG, EACH EVENING
     Route: 048
  20. TIOTROPIUM [Concomitant]
     Dosage: 18 UG, QD
     Route: 055
  21. DEXTROMETHORPHAN HYDROBROMIDE [Concomitant]
     Dosage: 15 MG, TID
     Route: 048
  22. DIPHENHYDRAMINE W/PARACETAMOL [Concomitant]
     Dosage: 25/500MG QHS
     Route: 048
  23. ERGOCALCIFEROL [Concomitant]
     Dosage: 50000 U, WEEKLY (1/W)
     Route: 048
  24. BUPROPION [Concomitant]
     Dosage: 100 MG, QD
     Route: 048
  25. EZETIMIBE [Concomitant]
     Dosage: 10 MG, QD
     Route: 048
  26. CETIRIZINE [Concomitant]
     Dosage: 10 MG, QD
     Route: 048

REACTIONS (5)
  - Urinary tract infection [Unknown]
  - Back pain [Unknown]
  - Headache [Unknown]
  - Nausea [Unknown]
  - Dermatomyositis [Recovered/Resolved]
